FAERS Safety Report 7655540-9 (Version None)
Quarter: 2011Q3

REPORT INFORMATION
  Report Type: 
  Country: None (occurrence: None)
  Receive Date: 20110801
  Receipt Date: 20110721
  Transmission Date: 20111222
  Serious: Yes (Other)
  Sender: FDA-Public Use
  Company Number: 1000022350

PATIENT
  Age: 78 Year
  Sex: Female

DRUGS (8)
  1. LEXAPRO [Suspect]
     Indication: DEPRESSION
     Dosage: 15 MG,ORAL
     Route: 048
     Dates: start: 20110601
  2. LEXAPRO [Suspect]
     Indication: DEPRESSION
     Dosage: 15 MG,ORAL
     Route: 048
     Dates: start: 20110601, end: 20110622
  3. LEXAPRO [Suspect]
     Indication: DEPRESSION
     Dosage: 10 MG, ORAL
     Route: 048
     Dates: start: 20110723, end: 20110728
  4. LEXAPRO [Suspect]
     Indication: DEPRESSION
     Dosage: 10 MG, ORAL
     Route: 048
     Dates: start: 20110727
  5. LEXAPRO [Suspect]
     Indication: DEPRESSION
     Dosage: 10 MG, ORAL
     Route: 048
     Dates: start: 20110101, end: 20110601
  6. LEXAPRO [Suspect]
     Indication: DEPRESSION
     Dosage: 10 MG, ORAL
     Route: 048
     Dates: start: 20110101, end: 20110601
  7. EXELON [Concomitant]
  8. LEVOTHYROXINE SODIUM [Concomitant]

REACTIONS (1)
  - CUTANEOUS LUPUS ERYTHEMATOSUS [None]
